FAERS Safety Report 8238157-7 (Version None)
Quarter: 2012Q1

REPORT INFORMATION
  Report Type: 
  Country: None (occurrence: None)
  Receive Date: 20120327
  Receipt Date: 20120319
  Transmission Date: 20120608
  Serious: Yes (Hospitalization)
  Sender: FDA-Public Use
  Company Number: DE-MUTUAL PHARMACEUTICAL COMPANY, INC.-TMDL20120002

PATIENT
  Sex: Female
  Weight: 37 kg

DRUGS (4)
  1. PANKREON 25000 [Concomitant]
     Route: 065
  2. METOPROLOL SUCCINATE [Concomitant]
     Route: 048
  3. ALLOPURINOL [Concomitant]
     Route: 048
     Dates: end: 20070520
  4. TRAMADOL HCL [Suspect]
     Route: 048
     Dates: start: 20070401, end: 20070525

REACTIONS (1)
  - SUBILEUS [None]
